FAERS Safety Report 6343766-6 (Version None)
Quarter: 2009Q3

REPORT INFORMATION
  Report Type: 
  Country: None (occurrence: None)
  Receive Date: 20090908
  Receipt Date: 20090828
  Transmission Date: 20100115
  Serious: No
  Sender: FDA-Public Use
  Company Number: B0584997A

PATIENT
  Sex: Male

DRUGS (9)
  1. ARTIST [Suspect]
     Indication: DRUG USE FOR UNKNOWN INDICATION
     Dosage: 10MG PER DAY
     Route: 048
     Dates: start: 20080501
  2. OLMETEC [Suspect]
     Indication: HYPERTENSION
     Dosage: 40MG PER DAY
     Route: 048
     Dates: start: 20020901, end: 20090630
  3. AMLODIPINE [Suspect]
     Indication: HYPERTENSION
     Dosage: 10MG PER DAY
     Route: 048
     Dates: start: 20020901, end: 20090630
  4. WARFARIN SODIUM [Concomitant]
     Indication: DRUG USE FOR UNKNOWN INDICATION
     Route: 065
  5. MEVALOTIN [Concomitant]
     Route: 065
  6. ESANBUTOL [Concomitant]
     Route: 065
  7. ASTOMIN [Concomitant]
     Route: 065
  8. KLARICID [Concomitant]
     Route: 065
  9. GARLIC [Concomitant]
     Route: 065

REACTIONS (3)
  - BLOOD PRESSURE DECREASED [None]
  - INTERNATIONAL NORMALISED RATIO INCREASED [None]
  - POTENTIATING DRUG INTERACTION [None]
